FAERS Safety Report 4842398-6 (Version None)
Quarter: 2005Q4

REPORT INFORMATION
  Report Type: 
  Country: None (occurrence: None)
  Receive Date: 20051201
  Receipt Date: 20050729
  Transmission Date: 20060501
  Serious: Yes (Death, Life-Threatening)
  Sender: FDA-Public Use
  Company Number: JP-BRISTOL-MYERS SQUIBB COMPANY-13056106

PATIENT
  Age: 49 Year
  Sex: Female

DRUGS (3)
  1. BLEOMYCIN [Suspect]
     Indication: OVARIAN CANCER
     Route: 042
     Dates: start: 20041213, end: 20050225
  2. LASTET [Concomitant]
     Indication: OVARIAN CANCER
     Route: 042
     Dates: start: 20041213, end: 20050225
  3. RANDA [Concomitant]
     Indication: OVARIAN CANCER
     Route: 042
     Dates: start: 20041213, end: 20050225

REACTIONS (1)
  - INTERSTITIAL LUNG DISEASE [None]
